FAERS Safety Report 25014632 (Version 1)
Quarter: 2025Q1

REPORT INFORMATION
  Report Type: Spontaneous
  Country: RO (occurrence: RO)
  Receive Date: 20250226
  Receipt Date: 20250226
  Transmission Date: 20250409
  Serious: Yes (Hospitalization, Disabling)
  Sender: NOVARTIS
  Company Number: RO-002147023-NVSC2025RO017560

PATIENT
  Age: 27 Year
  Sex: Male

DRUGS (1)
  1. COSENTYX [Suspect]
     Active Substance: SECUKINUMAB
     Indication: Psoriasis
     Dosage: 300 MG, QMO (INITIAL DOSE AT WEEKS 0, 1, 2, 3, 4, FOLLOWED BY MONTHLY DOSING)
     Route: 058
     Dates: start: 20240618

REACTIONS (3)
  - Alopecia universalis [Not Recovered/Not Resolved]
  - Alopecia areata [Unknown]
  - Emotional disorder [Not Recovered/Not Resolved]

NARRATIVE: CASE EVENT DATE: 20240901
